APPROVED DRUG PRODUCT: TAMOXIFEN CITRATE
Active Ingredient: TAMOXIFEN CITRATE
Strength: EQ 20MG BASE
Dosage Form/Route: TABLET;ORAL
Application: A213358 | Product #002 | TE Code: AB
Applicant: EUGIA PHARMA SPECIALITIES LTD
Approved: Aug 14, 2020 | RLD: No | RS: No | Type: RX